FAERS Safety Report 10190304 (Version 1)
Quarter: 2014Q2

REPORT INFORMATION
  Report Type: Spontaneous
  Country: US (occurrence: None)
  Receive Date: 20140521
  Receipt Date: 20140521
  Transmission Date: 20141212
  Serious: Yes (Hospitalization)
  Sender: FDA-Public Use
  Company Number: None

PATIENT
  Age: 61 Year
  Sex: Female
  Weight: 70.9 kg

DRUGS (1)
  1. CISPLATIN [Suspect]

REACTIONS (14)
  - Fatigue [None]
  - Asthenia [None]
  - Oropharyngeal pain [None]
  - Haemoglobin decreased [None]
  - Haematocrit decreased [None]
  - Pneumonia [None]
  - Chest X-ray abnormal [None]
  - Body temperature increased [None]
  - Nausea [None]
  - Hyponatraemia [None]
  - Dehydration [None]
  - Febrile neutropenia [None]
  - Hypoxia [None]
  - Sepsis [None]
